FAERS Safety Report 15790764 (Version 2)
Quarter: 2019Q1

REPORT INFORMATION
  Report Type: Report from Study
  Country: US (occurrence: US)
  Receive Date: 20190104
  Receipt Date: 20190211
  Transmission Date: 20190417
  Serious: Yes (Other)
  Sender: FDA-Public Use
  Company Number: US-SHIRE-US201900019

PATIENT
  Sex: Female

DRUGS (1)
  1. HUMAN NORMAL IMMUNOGLOBULIN; LIQUID [Suspect]
     Active Substance: HUMAN IMMUNOGLOBULIN G
     Indication: IMMUNODEFICIENCY COMMON VARIABLE
     Dosage: 40 G, 1X A MONTH
     Route: 042

REACTIONS (10)
  - Sinusitis [Unknown]
  - Feeling abnormal [Unknown]
  - Malaise [Unknown]
  - Nausea [Unknown]
  - Eye pain [Unknown]
  - Upper respiratory tract infection [Unknown]
  - Headache [Unknown]
  - Diarrhoea [Unknown]
  - Vertigo CNS origin [Unknown]
  - Blood cholesterol increased [Unknown]
